FAERS Safety Report 7905560-1 (Version None)
Quarter: 2011Q4

REPORT INFORMATION
  Report Type: 
  Country: None (occurrence: None)
  Receive Date: 20111110
  Receipt Date: 20111031
  Transmission Date: 20120403
  Serious: No
  Sender: FDA-Public Use
  Company Number: US-BIOGENIDEC-2011BI041793

PATIENT
  Age: 48 Year
  Sex: Female

DRUGS (1)
  1. TYSABRI [Suspect]
     Indication: MULTIPLE SCLEROSIS
     Route: 042
     Dates: start: 20090916

REACTIONS (6)
  - DEPRESSED MOOD [None]
  - PAIN [None]
  - MUSCLE SPASTICITY [None]
  - VACCINATION COMPLICATION [None]
  - EMOTIONAL DISTRESS [None]
  - POOR QUALITY SLEEP [None]
